FAERS Safety Report 13724597 (Version 2)
Quarter: 2017Q3

REPORT INFORMATION
  Report Type: Spontaneous
  Country: US (occurrence: US)
  Receive Date: 20170706
  Receipt Date: 20170713
  Transmission Date: 20171127
  Serious: Yes (Other)
  Sender: FDA-Public Use
  Company Number: PHHY2017US097552

PATIENT
  Age: 32 Year
  Sex: Female

DRUGS (3)
  1. EVEROLIMUS [Interacting]
     Active Substance: EVEROLIMUS
     Indication: HODGKIN^S DISEASE NODULAR SCLEROSIS STAGE I
     Dosage: 5 MG, QD
     Route: 048
     Dates: start: 201107
  2. VORICONAZOLE. [Suspect]
     Active Substance: VORICONAZOLE
     Indication: BRONCHOPULMONARY ASPERGILLOSIS
     Dosage: UNK
     Route: 065
     Dates: start: 201512
  3. EVEROLIMUS [Interacting]
     Active Substance: EVEROLIMUS
     Dosage: 10 MG, QD
     Route: 048

REACTIONS (8)
  - Glomerulonephritis membranous [Recovering/Resolving]
  - Drug interaction [Unknown]
  - Nephrotic syndrome [Recovering/Resolving]
  - Metastases to lung [Unknown]
  - Malignant neoplasm progression [Unknown]
  - Product use in unapproved indication [Unknown]
  - Viral myocarditis [Unknown]
  - Thrombotic microangiopathy [Recovering/Resolving]
